FAERS Safety Report 9349176 (Version 1)
Quarter: 2013Q2

REPORT INFORMATION
  Report Type: Spontaneous
  Country: US (occurrence: US)
  Receive Date: 20130614
  Receipt Date: 20130614
  Transmission Date: 20140414
  Serious: Yes (Other)
  Sender: FDA-Public Use
  Company Number: US-JHP PHARMACEUTICALS, LLC-JHP201300356

PATIENT
  Age: 22 Month
  Sex: Female

DRUGS (5)
  1. PITRESSIN [Suspect]
     Indication: SEPTIC SHOCK
     Dosage: 0.04 IU/KG, HR
  2. DOPAMINE [Suspect]
     Indication: SEPTIC SHOCK
     Dosage: 20 ?G/KG, HR
  3. NOREPINEPHRINE [Suspect]
     Indication: SEPTIC SHOCK
     Dosage: 0.7 ?G/KG, HR
  4. SEDATIVE [Concomitant]
     Indication: SEDATION
  5. PARALYTIC [Suspect]
     Indication: PARALYSIS

REACTIONS (1)
  - Drug ineffective [Recovered/Resolved]
